FAERS Safety Report 6130171-0 (Version None)
Quarter: 2009Q1

REPORT INFORMATION
  Report Type: 
  Country: None (occurrence: None)
  Receive Date: 20090324
  Receipt Date: 20090316
  Transmission Date: 20090719
  Serious: Yes (Life-Threatening)
  Sender: FDA-Public Use
  Company Number: JP-GENENTECH-277843

PATIENT
  Sex: Male

DRUGS (8)
  1. RITUXAN [Suspect]
     Indication: B-CELL LYMPHOMA
     Dosage: 660 MG, UNK
     Route: 042
     Dates: start: 20070710, end: 20070918
  2. DOXORUBICIN HCL [Concomitant]
     Indication: B-CELL LYMPHOMA
     Dosage: 90 MG, UNK
     Dates: start: 20070712, end: 20070920
  3. CYCLOPHOSPHAMIDE [Concomitant]
     Indication: B-CELL LYMPHOMA
     Dosage: 1350 MG, UNK
     Dates: start: 20070712, end: 20070920
  4. VINCRISTINE [Concomitant]
     Indication: B-CELL LYMPHOMA
     Dosage: 2 MG, UNK
     Dates: start: 20070712, end: 20070920
  5. PREDNISOLONE [Concomitant]
     Indication: B-CELL LYMPHOMA
     Dosage: 100 MG, UNK
     Dates: start: 20070712, end: 20070920
  6. LAFUTIDINE [Concomitant]
     Indication: ULCER
     Dosage: 20 MG, QD
     Route: 048
     Dates: start: 20070709, end: 20071002
  7. MECOBALAMIN [Concomitant]
     Indication: HYPOAESTHESIA
     Dosage: 1500 A?G, QD
     Route: 048
     Dates: start: 20070817, end: 20071005
  8. LENOGRASTIM [Concomitant]
     Indication: NEUTROPHIL COUNT DECREASED
     Dosage: UNK
     Dates: start: 20070714, end: 20071002

REACTIONS (1)
  - AGRANULOCYTOSIS [None]
